FAERS Safety Report 11895508 (Version 3)
Quarter: 2016Q3

REPORT INFORMATION
  Report Type: Spontaneous
  Country: US (occurrence: US)
  Receive Date: 20160107
  Receipt Date: 20160715
  Transmission Date: 20161109
  Serious: Yes (Other)
  Sender: FDA-Public Use
  Company Number: US-SA-2016SA000737

PATIENT
  Age: 64 Year
  Sex: Female
  Weight: 115.6 kg

DRUGS (4)
  1. TOUJEO [Suspect]
     Active Substance: INSULIN GLARGINE
     Dosage: DOSE:38 UNIT(S)
     Route: 065
  2. SOLOSTAR [Concomitant]
     Active Substance: DEVICE
  3. TOUJEO [Suspect]
     Active Substance: INSULIN GLARGINE
     Dosage: FREQUENCY: INCREASED THE DOSE EVERY 2 DAYS DOSE:14 UNIT(S)
     Route: 065
  4. TOUJEO [Suspect]
     Active Substance: INSULIN GLARGINE
     Dosage: DOSE:38 UNIT(S)
     Route: 065

REACTIONS (3)
  - Malaise [Unknown]
  - Blood glucose abnormal [Unknown]
  - Neoplasm malignant [Unknown]
